FAERS Safety Report 8879065 (Version 1)
Quarter: 2012Q4

REPORT INFORMATION
  Report Type: Spontaneous
  Country: US (occurrence: None)
  Receive Date: 20121031
  Receipt Date: 20121031
  Transmission Date: 20130627
  Serious: Yes (Life-Threatening, Hospitalization, Congenital Anomaly, Other)
  Sender: FDA-Public Use
  Company Number: None

PATIENT
  Age: 29 Year
  Sex: Female
  Weight: 68.04 kg

DRUGS (1)
  1. MIRENA IUD [Suspect]
     Indication: BIRTH CONTROL
     Dosage: one iud once every 5 yr vag
     Route: 067
     Dates: start: 20100507, end: 20111107

REACTIONS (7)
  - Haemorrhage [None]
  - Pregnancy with contraceptive device [None]
  - Foetal death [None]
  - Scar [None]
  - Device dislocation [None]
  - Abdominal pain [None]
  - Exposure during pregnancy [None]
